FAERS Safety Report 12323261 (Version 1)
Quarter: 2016Q2

REPORT INFORMATION
  Report Type: Spontaneous
  Country: US (occurrence: US)
  Receive Date: 20160502
  Receipt Date: 20160502
  Transmission Date: 20160815
  Serious: No
  Sender: FDA-Public Use
  Company Number: US-JNJFOC-20160315687

PATIENT
  Sex: Male
  Weight: 99.79 kg

DRUGS (2)
  1. REMICADE [Suspect]
     Active Substance: INFLIXIMAB
     Indication: COLITIS ULCERATIVE
     Dosage: INFLIXIMAB WAS STARTED IN OCTOBER OR NOVEMBER
     Route: 042
     Dates: start: 2014
  2. 6-MP [Concomitant]
     Active Substance: MERCAPTOPURINE
     Indication: COLITIS
     Route: 065
     Dates: start: 2014

REACTIONS (4)
  - Off label use [Unknown]
  - Product use issue [Unknown]
  - Weight decreased [Not Recovered/Not Resolved]
  - Acne [Not Recovered/Not Resolved]

NARRATIVE: CASE EVENT DATE: 2014
